FAERS Safety Report 7123778-5 (Version None)
Quarter: 2010Q4

REPORT INFORMATION
  Report Type: 
  Country: None (occurrence: None)
  Receive Date: 20101125
  Receipt Date: 20101112
  Transmission Date: 20110411
  Serious: Yes (Hospitalization, Other)
  Sender: FDA-Public Use
  Company Number: PHHY2010DE66139

PATIENT
  Sex: Male

DRUGS (13)
  1. RASILEZ [Suspect]
     Indication: HYPERTENSION
     Dosage: 1 DF, QD
     Dates: start: 20080401
  2. RASILEZ [Suspect]
     Dosage: 0.25 DF, QD
     Dates: start: 20090901
  3. RASILEZ [Suspect]
     Dosage: 0.5 DF, QD
  4. RASILEZ [Suspect]
     Dosage: 1 DF, QD
  5. RASILEZ [Suspect]
     Dosage: 0.5 DF, QD
  6. RASILEZ [Suspect]
     Dosage: 0.25 DF, QD
     Dates: end: 20101001
  7. TRIAMTERENE AND HYDROCHLOROTHIAZIDE [Concomitant]
     Dosage: UNK
  8. DIURETICS [Concomitant]
  9. TORASEMIDE [Concomitant]
     Dosage: UNK
  10. EZETIMIBE/SIMVASTATIN [Concomitant]
     Dosage: UNK
  11. GODAMED [Concomitant]
     Dosage: UNK
  12. TRIMIPRAMINE MALEATE [Concomitant]
     Dosage: UNK
  13. INSPRA [Concomitant]
     Dosage: 50 MG

REACTIONS (15)
  - AGITATION [None]
  - CIRCULATORY COLLAPSE [None]
  - CONTUSION [None]
  - DIZZINESS [None]
  - FACE INJURY [None]
  - FALL [None]
  - HEART RATE DECREASED [None]
  - HYPOTENSION [None]
  - LOSS OF CONSCIOUSNESS [None]
  - MALAISE [None]
  - OEDEMA PERIPHERAL [None]
  - SKIN LACERATION [None]
  - SOMNOLENCE [None]
  - SWELLING FACE [None]
  - TREMOR [None]
